FAERS Safety Report 5294462-8 (Version None)
Quarter: 2007Q2

REPORT INFORMATION
  Report Type: 
  Country: None (occurrence: None)
  Receive Date: 20070409
  Receipt Date: 20070409
  Transmission Date: 20071010
  Serious: Yes (Hospitalization)
  Sender: FDA-Public Use
  Company Number: None

PATIENT
  Sex: Female
  Weight: 58.18 kg

DRUGS (2)
  1. CISPLATIN [Suspect]
     Dosage: 47 MG
  2. ERBITUX [Suspect]
     Dosage: 390 MG

REACTIONS (7)
  - CLOSTRIDIUM DIFFICILE TOXIN TEST POSITIVE [None]
  - DEHYDRATION [None]
  - DIARRHOEA [None]
  - ELECTROLYTE IMBALANCE [None]
  - FATIGUE [None]
  - NAUSEA [None]
  - VOMITING [None]
